FAERS Safety Report 7411001-3 (Version None)
Quarter: 2011Q1

REPORT INFORMATION
  Report Type: 
  Country: None (occurrence: None)
  Receive Date: 20110302
  Receipt Date: 20101102
  Transmission Date: 20110831
  Serious: No
  Sender: FDA-Public Use
  Company Number: 016757

PATIENT
  Sex: Female
  Weight: 42.6 kg

DRUGS (4)
  1. VITAMINS NOS [Concomitant]
  2. ASCORBIC ACID [Concomitant]
  3. CIMZIA [Suspect]
     Indication: CROHN'S DISEASE
     Dosage: (200 MG 1X/2 WEEKS SUBCUTANEOUS), (400 MG 1X/2 WEEKS SUBCUTANEOUS)
     Route: 058
     Dates: start: 20100410
  4. CIMZIA [Suspect]
     Indication: CROHN'S DISEASE
     Dosage: (200 MG 1X/2 WEEKS SUBCUTANEOUS), (400 MG 1X/2 WEEKS SUBCUTANEOUS)
     Route: 058
     Dates: start: 20100401

REACTIONS (9)
  - BURSITIS [None]
  - PAIN IN EXTREMITY [None]
  - CROHN'S DISEASE [None]
  - INSOMNIA [None]
  - PAIN [None]
  - ARTHRITIS [None]
  - FIBROMYALGIA [None]
  - INJECTION SITE HAEMATOMA [None]
  - INJECTION SITE PAIN [None]
